FAERS Safety Report 12414797 (Version 1)
Quarter: 2016Q2

REPORT INFORMATION
  Report Type: Spontaneous
  Country: DE (occurrence: DE)
  Receive Date: 20160529
  Receipt Date: 20160529
  Transmission Date: 20160815
  Serious: Yes (Life-Threatening)
  Sender: FDA-Public Use
  Company Number: PHHY2016DE069356

PATIENT
  Sex: Male

DRUGS (4)
  1. SALBUTAMOL [Concomitant]
     Active Substance: ALBUTEROL
     Indication: PRODUCT USED FOR UNKNOWN INDICATION
     Route: 065
  2. TIOTROPIUM [Concomitant]
     Active Substance: TIOTROPIUM
     Indication: PRODUCT USED FOR UNKNOWN INDICATION
     Route: 065
  3. TOBI [Suspect]
     Active Substance: TOBRAMYCIN
     Indication: PSEUDOMONAS INFECTION
     Dosage: 1 DF, BID
     Route: 065
     Dates: start: 20160512
  4. BUDESONIDE EASYHALER [Concomitant]
     Indication: PRODUCT USED FOR UNKNOWN INDICATION
     Route: 065

REACTIONS (6)
  - Fear of death [Recovered/Resolved]
  - Oxygen consumption increased [Unknown]
  - Gait disturbance [Not Recovered/Not Resolved]
  - Off label use [Unknown]
  - Treatment failure [Unknown]
  - Dyspnoea [Not Recovered/Not Resolved]

NARRATIVE: CASE EVENT DATE: 20160512
